FAERS Safety Report 16338079 (Version 1)
Quarter: 2019Q2

REPORT INFORMATION
  Report Type: Spontaneous
  Country: US (occurrence: US)
  Receive Date: 20190416
  Receipt Date: 20190416
  Transmission Date: 20190711
  Serious: No
  Sender: FDA-Public Use
  Company Number: None

PATIENT
  Age: 52 Year
  Sex: Female

DRUGS (1)
  1. DAPTOMYCIN 500 MG FRESENIUS KABI USA [Suspect]
     Active Substance: DAPTOMYCIN
     Indication: WOUND
     Route: 042
     Dates: start: 20180319

REACTIONS (2)
  - Pain [None]
  - Blood creatine phosphokinase increased [None]

NARRATIVE: CASE EVENT DATE: 20190408
